FAERS Safety Report 22257571 (Version 1)
Quarter: 2023Q2

REPORT INFORMATION
  Report Type: Spontaneous
  Country: US (occurrence: US)
  Receive Date: 20230427
  Receipt Date: 20230427
  Transmission Date: 20230722
  Serious: Yes (Other)
  Sender: FDA-Public Use
  Company Number: US-AMGEN-USASP2023069790

PATIENT
  Age: 9 Year
  Sex: Male

DRUGS (2)
  1. RITUXIMAB [Suspect]
     Active Substance: RITUXIMAB
     Indication: Transplant rejection
     Dosage: UNK
     Route: 065
  2. HUMAN IMMUNOGLOBULIN G [Concomitant]
     Active Substance: HUMAN IMMUNOGLOBULIN G
     Indication: Transplant rejection
     Dosage: UNK
     Route: 042

REACTIONS (5)
  - Renal injury [Unknown]
  - Cardiorenal syndrome [Unknown]
  - Heart transplant failure [Unknown]
  - Drug ineffective for unapproved indication [Unknown]
  - Off label use [Unknown]
